FAERS Safety Report 25184425 (Version 1)
Quarter: 2025Q2

REPORT INFORMATION
  Report Type: Spontaneous
  Country: US (occurrence: None)
  Receive Date: 20250409
  Receipt Date: 20250409
  Transmission Date: 20250716
  Serious: Yes (Hospitalization, Disabling)
  Sender: FDA-CTU
  Company Number: None

PATIENT
  Age: 54 Year
  Sex: Female
  Weight: 73.8 kg

DRUGS (9)
  1. ZEPBOUND [Suspect]
     Active Substance: TIRZEPATIDE
     Indication: Weight decreased
     Route: 058
     Dates: start: 20250319, end: 20250409
  2. ZEPBOUND [Suspect]
     Active Substance: TIRZEPATIDE
     Indication: Obesity
  3. DEPAKOTE [Concomitant]
     Active Substance: DIVALPROEX SODIUM
  4. LAMICTAL [Suspect]
     Active Substance: LAMOTRIGINE
  5. APTIOM [Concomitant]
     Active Substance: ESLICARBAZEPINE ACETATE
  6. BUSPAR [Concomitant]
     Active Substance: BUSPIRONE HYDROCHLORIDE
  7. syntheoid [Concomitant]
  8. PROTONIX [Concomitant]
     Active Substance: PANTOPRAZOLE SODIUM
  9. SIMVASTATIN [Concomitant]
     Active Substance: SIMVASTATIN

REACTIONS (4)
  - Loss of consciousness [None]
  - Confusional state [None]
  - Migraine [None]
  - Impaired work ability [None]

NARRATIVE: CASE EVENT DATE: 20250311
